FAERS Safety Report 8291495-4 (Version None)
Quarter: 2012Q2

REPORT INFORMATION
  Report Type: 
  Country: None (occurrence: None)
  Receive Date: 20120417
  Receipt Date: 20120410
  Transmission Date: 20120825
  Serious: Yes (Hospitalization)
  Sender: FDA-Public Use
  Company Number: US-BAYER-2012-034658

PATIENT
  Age: 27 Year
  Sex: Female

DRUGS (1)
  1. MIRENA [Suspect]
     Indication: CONTRACEPTION
     Dosage: 20 MCG/24HR, UNK
     Route: 015

REACTIONS (8)
  - COMPLICATION OF DEVICE REMOVAL [None]
  - DYSMENORRHOEA [None]
  - MENORRHAGIA [None]
  - SEXUAL DYSFUNCTION [None]
  - HORMONE LEVEL ABNORMAL [None]
  - DEVICE DISLOCATION [None]
  - PAIN [None]
  - MEDICAL DEVICE COMPLICATION [None]
